FAERS Safety Report 17160322 (Version 1)
Quarter: 2019Q4

REPORT INFORMATION
  Report Type: Spontaneous
  Country: US (occurrence: US)
  Receive Date: 20191216
  Receipt Date: 20191216
  Transmission Date: 20200122
  Serious: No
  Sender: FDA-Public Use
  Company Number: US-PFIZER INC-2019538296

PATIENT
  Age: 89 Year
  Sex: Male
  Weight: 73.48 kg

DRUGS (1)
  1. POTASSIUM CHLORIDE. [Suspect]
     Active Substance: POTASSIUM CHLORIDE
     Indication: AMYLOIDOSIS
     Dosage: UNK

REACTIONS (3)
  - Off label use [Unknown]
  - Blood potassium increased [Unknown]
  - Product use in unapproved indication [Unknown]
